FAERS Safety Report 6989970-5 (Version None)
Quarter: 2010Q3

REPORT INFORMATION
  Report Type: 
  Country: None (occurrence: None)
  Receive Date: 20100916
  Receipt Date: 20100330
  Transmission Date: 20110219
  Serious: Yes (Other)
  Sender: FDA-Public Use
  Company Number: SE-PFIZER INC-2010040338

PATIENT
  Sex: Male

DRUGS (6)
  1. LYRICA [Suspect]
     Indication: GENERALISED ANXIETY DISORDER
     Dosage: UNK
     Dates: start: 20091201, end: 20100301
  2. ATACAND HCT [Concomitant]
     Dosage: 16 MG, UNK
  3. VENTOLIN [Concomitant]
     Dosage: UNK
  4. SYMBICORT [Concomitant]
     Dosage: UNK
  5. CIPRALEX [Concomitant]
     Dosage: 10 MG, UNK
  6. NEXIUM [Concomitant]
     Dosage: 40 MG, UNK

REACTIONS (3)
  - BLOOD CREATINE PHOSPHOKINASE INCREASED [None]
  - MUSCULAR WEAKNESS [None]
  - MYOGLOBIN BLOOD INCREASED [None]
